FAERS Safety Report 4929340-4 (Version None)
Quarter: 2006Q1

REPORT INFORMATION
  Report Type: 
  Country: None (occurrence: None)
  Receive Date: 20060223
  Receipt Date: 20060131
  Transmission Date: 20060701
  Serious: Yes (Life-Threatening, Hospitalization, Other)
  Sender: FDA-Public Use
  Company Number: US200511001749

PATIENT
  Age: 65 Year
  Sex: Female

DRUGS (9)
  1. FORTEO [Suspect]
     Indication: OSTEOPOROSIS
     Dates: start: 20031116
  2. FORTEO [Concomitant]
  3. HYZAAR [Concomitant]
  4. NAPROXEN [Concomitant]
  5. PRAVACHOL [Concomitant]
  6. GLUCOSAMINE (GLUCOSAMINE) [Concomitant]
  7. OSCAL (CALCIUM CARBONATE) [Concomitant]
  8. ASA (ASPIRIN (ACETYLSALICYLIC ACID) [Concomitant]
  9. CELEXA [Concomitant]

REACTIONS (2)
  - ACUTE ABDOMEN [None]
  - DUODENAL ULCER PERFORATION [None]
